FAERS Safety Report 8269060-4 (Version None)
Quarter: 2012Q2

REPORT INFORMATION
  Report Type: 
  Country: None (occurrence: None)
  Receive Date: 20120409
  Receipt Date: 20120405
  Transmission Date: 20120825
  Serious: Yes (Other)
  Sender: FDA-Public Use
  Company Number: CA-PFIZER INC-2012010771

PATIENT
  Sex: Male

DRUGS (4)
  1. TAMSULOSIN HYDROCHLORIDE [Concomitant]
     Dosage: UNK
  2. ATARAX [Concomitant]
     Dosage: UNK
  3. VARENICLINE TARTRATE [Suspect]
     Indication: SMOKING CESSATION THERAPY
     Dosage: TOOK AS PRESCRIBED
  4. CLONAZEPAM [Concomitant]
     Indication: INSOMNIA
     Dosage: UNK

REACTIONS (6)
  - ILLUSION [None]
  - FACE INJURY [None]
  - HALLUCINATION [None]
  - HAEMORRHAGE [None]
  - THROMBOSIS [None]
  - NIGHTMARE [None]
